FAERS Safety Report 14991841 (Version 1)
Quarter: 2018Q2

REPORT INFORMATION
  Report Type: Report from Study
  Country: ES (occurrence: ES)
  Receive Date: 20180608
  Receipt Date: 20180608
  Transmission Date: 20180711
  Serious: Yes (Hospitalization)
  Sender: FDA-Public Use
  Company Number: PHHY2018ES015044

PATIENT
  Age: 72 Year
  Sex: Male
  Weight: 90 kg

DRUGS (5)
  1. VILDAGLIPTINA [Concomitant]
     Indication: DIABETES MELLITUS
     Dosage: 50 MG, UNK
     Route: 065
  2. EPLERENONE. [Concomitant]
     Active Substance: EPLERENONE
     Indication: CARDIAC FAILURE CHRONIC
     Dosage: 25 MG, UNK
     Route: 065
  3. BISOPROLOL [Concomitant]
     Active Substance: BISOPROLOL
     Indication: CARDIAC FAILURE CHRONIC
     Dosage: 5 MG, UNK
     Route: 065
  4. FUROSEMIDE. [Concomitant]
     Active Substance: FUROSEMIDE
     Indication: CARDIAC FAILURE CHRONIC
     Dosage: 40 MG, UNK
     Route: 065
  5. ENTRESTO [Suspect]
     Active Substance: SACUBITRIL\VALSARTAN
     Indication: CARDIAC FAILURE
     Dosage: 1 DF (49 MG OF SACUBITRIL/51 MG OF VALSARTAN), BID
     Route: 048
     Dates: end: 20180310

REACTIONS (11)
  - Pleural effusion [Recovered/Resolved]
  - Cardiac failure acute [Recovered/Resolved]
  - Hyperglycaemia [Recovered/Resolved]
  - Respiratory failure [Recovered/Resolved]
  - Nephropathy [Recovered/Resolved]
  - Hyperglycaemia [Recovered/Resolved]
  - Cardiac failure acute [Recovered/Resolved]
  - Respiratory failure [Recovered/Resolved]
  - Cardiac failure acute [Recovered/Resolved]
  - Lower respiratory tract infection [Recovered/Resolved]
  - Respiratory tract infection [Recovered/Resolved]

NARRATIVE: CASE EVENT DATE: 20180308
